FAERS Safety Report 7944837-0 (Version None)
Quarter: 2011Q4

REPORT INFORMATION
  Report Type: 
  Country: None (occurrence: None)
  Receive Date: 20111129
  Receipt Date: 20111122
  Transmission Date: 20120403
  Serious: Yes (Hospitalization)
  Sender: FDA-Public Use
  Company Number: FR-PFIZER INC-2011285028

PATIENT
  Age: 62 Year
  Sex: Male

DRUGS (17)
  1. LORAZEPAM [Suspect]
     Dosage: 1 MG, 2X/DAY
     Route: 048
  2. IODINE [Suspect]
     Dosage: 350 MG IODINE/ML
     Route: 042
     Dates: start: 20091217, end: 20091217
  3. NOCTRAN 10 [Suspect]
     Dosage: 1 DF, 1X/DAY
     Route: 048
     Dates: end: 20091223
  4. NEXIUM [Concomitant]
     Dosage: UNK
  5. VFEND [Suspect]
     Indication: ASPERGILLOSIS
     Dosage: 2 DF, 1X/DAY
     Route: 048
     Dates: start: 20091201
  6. PRAZEPAM [Suspect]
     Dosage: 10 MG, 1X/DAY
     Route: 048
     Dates: end: 20091223
  7. PRAVASTATIN [Concomitant]
     Dosage: UNK
  8. MOVIPREP [Concomitant]
     Dosage: UNK
  9. LASIX [Suspect]
     Dosage: 60 MG, 1X/DAY
     Route: 048
     Dates: end: 20091223
  10. VALSARTAN [Suspect]
     Dosage: 160 MG, 1X/DAY
     Route: 048
     Dates: end: 20091223
  11. DURAGESIC-100 [Suspect]
     Dosage: 50 UG EVERY 72 HOURS
     Route: 062
  12. ALLOPURINOL [Concomitant]
     Dosage: UNK
  13. ESCITALOPRAM [Concomitant]
     Dosage: UNK
  14. TOCO [Concomitant]
     Dosage: UNK
  15. FERROUS SULFATE TAB [Concomitant]
     Dosage: UNK
  16. ASPIRIN [Concomitant]
     Dosage: UNK
  17. ATENOLOL [Concomitant]
     Dosage: UNK

REACTIONS (2)
  - DISTURBANCE IN ATTENTION [None]
  - RENAL FAILURE ACUTE [None]
